FAERS Safety Report 7531897-4 (Version None)
Quarter: 2011Q2

REPORT INFORMATION
  Report Type: 
  Country: None (occurrence: None)
  Receive Date: 20110608
  Receipt Date: 20110527
  Transmission Date: 20111010
  Serious: Yes (Death)
  Sender: FDA-Public Use
  Company Number: JP-SANOFI-AVENTIS-2011SA018176

PATIENT
  Age: 76 Year
  Sex: Female
  Weight: 45 kg

DRUGS (25)
  1. DEXAMETHASONE [Concomitant]
     Indication: PREMEDICATION
     Route: 041
     Dates: start: 20110224, end: 20110224
  2. DEXAMETHASONE [Concomitant]
     Route: 048
     Dates: start: 20110225, end: 20110226
  3. MORPHINE HCL ELIXIR [Concomitant]
     Indication: PAIN
     Route: 058
     Dates: start: 20110227, end: 20110227
  4. OXALIPLATIN [Suspect]
     Route: 042
     Dates: start: 20110224, end: 20110224
  5. FENTANYL CITRATE [Concomitant]
     Indication: CANCER PAIN
     Route: 061
     Dates: start: 20110226, end: 20110226
  6. SCOPOLAMINE [Concomitant]
     Indication: CANCER PAIN
     Route: 042
     Dates: start: 20110226, end: 20110226
  7. FLURBIPROFEN [Concomitant]
     Indication: PAIN
     Route: 042
     Dates: start: 20110226, end: 20110226
  8. FLUOROURACIL [Concomitant]
     Indication: RECTAL CANCER
     Route: 042
     Dates: start: 20110111, end: 20110111
  9. MEYLON [Concomitant]
     Indication: METABOLIC ACIDOSIS
     Route: 041
     Dates: start: 20110227, end: 20110227
  10. LIDOCAINE HYDROCHLORIDE [Concomitant]
     Route: 042
     Dates: start: 20110227, end: 20110227
  11. OXALIPLATIN [Suspect]
     Indication: RECTAL CANCER
     Route: 042
     Dates: start: 20110111, end: 20110111
  12. XELODA [Suspect]
     Indication: RECTAL CANCER
     Route: 048
     Dates: start: 20110224, end: 20110226
  13. DEXAMETHASONE [Concomitant]
     Route: 048
     Dates: start: 20110225, end: 20110226
  14. MORPHINE HCL ELIXIR [Concomitant]
     Indication: CANCER PAIN
     Dosage: 5 X DAILY
     Route: 048
     Dates: start: 20110224, end: 20110226
  15. KYTRIL [Concomitant]
     Indication: NAUSEA
     Route: 048
     Dates: start: 20110225, end: 20110225
  16. LEUCOVORIN CALCIUM [Concomitant]
     Indication: RECTAL CANCER
     Route: 041
     Dates: start: 20110111, end: 20110111
  17. EMEND [Concomitant]
     Indication: PREMEDICATION
     Route: 048
     Dates: start: 20110224, end: 20110226
  18. MORPHINE SULFATE [Concomitant]
     Indication: CANCER PAIN
     Route: 048
     Dates: start: 20110224, end: 20110226
  19. ATARAX [Concomitant]
     Indication: INSOMNIA
     Route: 042
     Dates: start: 20110227, end: 20110227
  20. OCTREOTIDE ACETATE [Concomitant]
     Indication: INTESTINAL OBSTRUCTION
     Route: 058
     Dates: start: 20110227, end: 20110227
  21. DEXAMETHASONE [Concomitant]
     Indication: NAUSEA
     Route: 041
     Dates: start: 20110224, end: 20110224
  22. NAUZELIN [Concomitant]
     Indication: NAUSEA
     Route: 048
     Dates: start: 20110225, end: 20110226
  23. DOPAMINE HYDROCHLORIDE [Concomitant]
     Indication: CIRCULATORY COLLAPSE
     Route: 041
     Dates: start: 20110227, end: 20110227
  24. MIRACLID [Concomitant]
     Route: 041
     Dates: start: 20110227, end: 20110227
  25. FRESH FROZEN PLASMA [Concomitant]
     Dosage: DOSE:2 UNIT(S)
     Route: 041
     Dates: start: 20110227, end: 20110227

REACTIONS (2)
  - INSOMNIA [None]
  - ILEUS [None]
